FAERS Safety Report 9140145 (Version 2)
Quarter: 2013Q2

REPORT INFORMATION
  Report Type: Spontaneous
  Country: NL (occurrence: NL)
  Receive Date: 20130305
  Receipt Date: 20130403
  Transmission Date: 20140414
  Serious: Yes (Death, Hospitalization)
  Sender: FDA-Public Use
  Company Number: PHHY2013NL021539

PATIENT
  Sex: Female

DRUGS (23)
  1. ACLASTA [Suspect]
     Indication: OSTEOPOROSIS
     Dosage: 5MG/100ML YEARLY
     Route: 042
     Dates: start: 20110510
  2. ACLASTA [Suspect]
     Dosage: 5MG/100ML YEARLY
     Route: 042
     Dates: start: 20120510
  3. TEMAZEPAM [Concomitant]
     Dosage: UNK
     Route: 048
  4. LORAZEPAM [Concomitant]
     Dosage: UNK
     Route: 048
  5. CALCIUM [Concomitant]
     Dosage: UNK
     Route: 048
  6. LACTULOSE [Concomitant]
     Dosage: UNK
     Route: 048
  7. CITALOPRAM [Concomitant]
     Dosage: UNK
     Route: 048
  8. OXYNORM [Concomitant]
     Dosage: 5 MG, (1-3DD WHEN NEEDED)
     Route: 048
  9. FENTANYL [Concomitant]
     Dosage: 100 UG/HR, UNK
     Route: 048
  10. PLAVIX [Concomitant]
     Dosage: UNK
  11. ASCAL [Concomitant]
     Dosage: UNK
  12. NITROGLYCERIN [Concomitant]
     Dosage: UNK
  13. AMLODIPINE [Concomitant]
     Dosage: UNK
  14. PERINDOPRIL [Concomitant]
     Dosage: UNK
  15. SERETIDE [Concomitant]
     Dosage: UNK
  16. THIAMINE [Concomitant]
     Dosage: UNK
  17. HALDOL [Concomitant]
     Dosage: UNK
  18. METOPROLOL [Concomitant]
     Dosage: UNK
  19. RANITIDINE [Concomitant]
     Dosage: UNK
  20. MAGNESIUM OXIDE [Concomitant]
     Dosage: UNK
  21. POTASSIUM CHLORIDE [Concomitant]
     Dosage: UNK
  22. SALBUTAMOL [Concomitant]
     Dosage: UNK
  23. TERIPARATIDE [Concomitant]

REACTIONS (5)
  - Pneumonia [Fatal]
  - Delirium [Fatal]
  - Depression [Fatal]
  - Atrial fibrillation [Fatal]
  - Acute coronary syndrome [Fatal]
